FAERS Safety Report 21365250 (Version 2)
Quarter: 2024Q2

REPORT INFORMATION
  Report Type: Spontaneous
  Country: JP (occurrence: JP)
  Receive Date: 20220922
  Receipt Date: 20240624
  Transmission Date: 20240716
  Serious: Yes (Hospitalization, Other)
  Sender: FDA-Public Use
  Company Number: JP-ABBVIE-4128055

PATIENT
  Age: 57 Year
  Sex: Female

DRUGS (7)
  1. KALETRA [Suspect]
     Active Substance: LOPINAVIR\RITONAVIR
     Indication: HIV infection
     Route: 048
     Dates: start: 20080501, end: 20081201
  2. ZITHROMAX [Concomitant]
     Active Substance: AZITHROMYCIN DIHYDRATE
     Indication: Product used for unknown indication
     Dates: start: 20080527, end: 20080724
  3. PREDONINE [Concomitant]
     Active Substance: PREDNISOLONE
     Indication: Product used for unknown indication
     Dates: start: 20080612, end: 20080718
  4. GABAPENTIN [Suspect]
     Active Substance: GABAPENTIN
     Indication: Seizure prophylaxis
     Dates: start: 20080808
  5. DEPAKENE [Suspect]
     Active Substance: VALPROIC ACID
     Indication: Seizure prophylaxis
     Route: 065
     Dates: start: 20080708, end: 20080807
  6. EMTRICITABINE\TENOFOVIR DISOPROXIL FUMARATE [Suspect]
     Active Substance: EMTRICITABINE\TENOFOVIR DISOPROXIL FUMARATE
     Indication: HIV infection
     Route: 048
     Dates: start: 20080623, end: 20100222
  7. ATOVAQUONE [Concomitant]
     Active Substance: ATOVAQUONE
     Indication: Product used for unknown indication
     Dates: start: 20080501, end: 20080724

REACTIONS (5)
  - Epilepsy [Recovered/Resolved]
  - Hepatic function abnormal [Recovered/Resolved]
  - Blood triglycerides increased [Recovered/Resolved]
  - Blood alkaline phosphatase increased [Recovered/Resolved]
  - Beta 2 microglobulin urine increased [Recovered/Resolved]

NARRATIVE: CASE EVENT DATE: 20080706
